FAERS Safety Report 22064928 (Version 1)
Quarter: 2023Q1

REPORT INFORMATION
  Report Type: Report from Study
  Country: IE (occurrence: IE)
  Receive Date: 20230306
  Receipt Date: 20230306
  Transmission Date: 20230418
  Serious: Yes (Hospitalization)
  Sender: FDA-Public Use
  Company Number: IE-AstraZeneca-2022A348567

PATIENT
  Age: 36 Day
  Sex: Female

DRUGS (5)
  1. SYNAGIS [Suspect]
     Active Substance: PALIVIZUMAB
     Indication: Trisomy 21
     Dosage: 15 MG/KG AFTER 28 DAYS
     Route: 030
     Dates: start: 20221011
  2. SYNAGIS [Suspect]
     Active Substance: PALIVIZUMAB
     Dosage: 15 MG/KG AFTER 28 DAYS
     Route: 030
     Dates: start: 20221108
  3. SYNAGIS [Suspect]
     Active Substance: PALIVIZUMAB
     Dosage: 15 MG/KG AFTER 28 DAYS
     Route: 030
     Dates: start: 20221206
  4. SYNAGIS [Suspect]
     Active Substance: PALIVIZUMAB
     Dosage: 15 MG/KG AFTER 28 DAYS
     Route: 030
     Dates: start: 20230118
  5. SYNAGIS [Suspect]
     Active Substance: PALIVIZUMAB
     Dosage: 15 MG/KG AFTER 28 DAYS
     Route: 030
     Dates: start: 20230216

REACTIONS (5)
  - Viral infection [Recovered/Resolved]
  - Vomiting [Recovered/Resolved]
  - Metapneumovirus infection [Recovered/Resolved]
  - Off label use [Not Recovered/Not Resolved]
  - Faeces discoloured [Recovered/Resolved]

NARRATIVE: CASE EVENT DATE: 20221011
